FAERS Safety Report 5243686-4 (Version None)
Quarter: 2007Q1

REPORT INFORMATION
  Report Type: 
  Country: None (occurrence: None)
  Receive Date: 20070220
  Receipt Date: 20070220
  Transmission Date: 20070707
  Serious: Yes (Other)
  Sender: FDA-Public Use
  Company Number: None

PATIENT
  Sex: Male
  Weight: 77.1115 kg

DRUGS (2)
  1. SUCRALOSE NOT PROVIDED [Suspect]
     Indication: DIABETES MELLITUS MANAGEMENT
     Dosage: NOT PROVIDED ON LABEL
     Dates: start: 20060601, end: 20061015
  2. SUCRALOSE NOT PROVIDED [Suspect]
     Indication: WEIGHT LOSS DIET
     Dosage: NOT PROVIDED ON LABEL
     Dates: start: 20060601, end: 20061015

REACTIONS (7)
  - ADVERSE DRUG REACTION [None]
  - DIPLOPIA [None]
  - EYELID PTOSIS [None]
  - FACIAL PALSY [None]
  - HEADACHE [None]
  - MULTIPLE SCLEROSIS [None]
  - NEUROLOGICAL SYMPTOM [None]
